FAERS Safety Report 11250649 (Version 1)
Quarter: 2015Q3

REPORT INFORMATION
  Report Type: Spontaneous
  Country: US (occurrence: US)
  Receive Date: 20150708
  Receipt Date: 20150708
  Transmission Date: 20151125
  Serious: No
  Sender: FDA-Public Use
  Company Number: US-ELI_LILLY_AND_COMPANY-US201012000932

PATIENT
  Age: 27 Year
  Sex: Male
  Weight: 198 kg

DRUGS (3)
  1. COGENTIN [Concomitant]
     Active Substance: BENZTROPINE MESYLATE
     Dosage: 0.5 MG, UNK
  2. VITAMINS NOS [Concomitant]
     Active Substance: VITAMINS
  3. SYMBYAX [Suspect]
     Active Substance: FLUOXETINE HYDROCHLORIDE\OLANZAPINE
     Indication: SCHIZOPHRENIA
     Dosage: 12/25, DAILY
     Route: 048
     Dates: start: 20101105

REACTIONS (4)
  - Muscle spasms [Recovered/Resolved]
  - Foot deformity [Recovered/Resolved]
  - Tardive dyskinesia [Recovered/Resolved]
  - Akathisia [Recovered/Resolved]

NARRATIVE: CASE EVENT DATE: 20101105
